FAERS Safety Report 14587832 (Version 2)
Quarter: 2018Q2

REPORT INFORMATION
  Report Type: Report from Study
  Country: JP (occurrence: JP)
  Receive Date: 20180301
  Receipt Date: 20180619
  Transmission Date: 20180711
  Serious: Yes (Death, Life-Threatening, Hospitalization, Other)
  Sender: FDA-Public Use
  Company Number: JP-TAIHO ONCOLOGY INC-JPTT170980

PATIENT
  Age: 63 Year
  Sex: Male
  Weight: 55 kg

DRUGS (1)
  1. LONSURF [Suspect]
     Active Substance: TIPIRACIL HYDROCHLORIDE\TRIFLURIDINE
     Indication: RECTAL CANCER METASTATIC
     Dosage: 45 MG X 2/DAY, ON DAYS 1-2 AND 10-12
     Route: 048
     Dates: start: 20150713, end: 20150724

REACTIONS (13)
  - Aspartate aminotransferase increased [Not Recovered/Not Resolved]
  - Anaemia [Not Recovered/Not Resolved]
  - Pain [Recovering/Resolving]
  - Alanine aminotransferase increased [Not Recovered/Not Resolved]
  - Rectal cancer metastatic [Fatal]
  - Hyperkalaemia [Not Recovered/Not Resolved]
  - Blood alkaline phosphatase increased [Not Recovered/Not Resolved]
  - Hyperbilirubinaemia [Not Recovered/Not Resolved]
  - White blood cell count decreased [Recovered/Resolved]
  - Blood creatinine increased [Not Recovered/Not Resolved]
  - Hyponatraemia [Not Recovered/Not Resolved]
  - Pyrexia [Recovering/Resolving]
  - Platelet count decreased [Not Recovered/Not Resolved]

NARRATIVE: CASE EVENT DATE: 20150714
